FAERS Safety Report 16481012 (Version 31)
Quarter: 2024Q2

REPORT INFORMATION
  Report Type: Report from Study
  Country: CA (occurrence: CA)
  Receive Date: 20190626
  Receipt Date: 20240506
  Transmission Date: 20240715
  Serious: Yes (Hospitalization, Other)
  Sender: FDA-Public Use
  Company Number: CA-SHIRE-CA201919300

PATIENT
  Age: 57 Year
  Sex: Male
  Weight: 63 kg

DRUGS (47)
  1. TEDUGLUTIDE [Suspect]
     Active Substance: TEDUGLUTIDE
     Indication: Short-bowel syndrome
     Dosage: 3 MILLIGRAM, QD
     Route: 058
     Dates: start: 20190412
  2. TEDUGLUTIDE [Suspect]
     Active Substance: TEDUGLUTIDE
     Indication: Short-bowel syndrome
     Dosage: 3 MILLIGRAM, QD
     Route: 058
     Dates: start: 20190412
  3. TEDUGLUTIDE [Suspect]
     Active Substance: TEDUGLUTIDE
     Indication: Short-bowel syndrome
     Dosage: 3 MILLIGRAM, QD
     Route: 058
     Dates: start: 20190412
  4. TEDUGLUTIDE [Suspect]
     Active Substance: TEDUGLUTIDE
     Indication: Short-bowel syndrome
     Dosage: 3 MILLIGRAM, QD
     Route: 058
     Dates: start: 20190412
  5. TEDUGLUTIDE [Suspect]
     Active Substance: TEDUGLUTIDE
     Dosage: 3 MILLIGRAM, QD
     Route: 058
     Dates: start: 20200406
  6. TEDUGLUTIDE [Suspect]
     Active Substance: TEDUGLUTIDE
     Dosage: 3 MILLIGRAM, QD
     Route: 058
     Dates: start: 20200406
  7. TEDUGLUTIDE [Suspect]
     Active Substance: TEDUGLUTIDE
     Dosage: 3 MILLIGRAM, QD
     Route: 058
     Dates: start: 20200406
  8. TEDUGLUTIDE [Suspect]
     Active Substance: TEDUGLUTIDE
     Dosage: 3 MILLIGRAM, QD
     Route: 058
     Dates: start: 20200406
  9. TEDUGLUTIDE [Suspect]
     Active Substance: TEDUGLUTIDE
     Dosage: 3.2 MILLIGRAM, QD
     Route: 058
  10. TEDUGLUTIDE [Suspect]
     Active Substance: TEDUGLUTIDE
     Dosage: 3.2 MILLIGRAM, QD
     Route: 058
  11. TEDUGLUTIDE [Suspect]
     Active Substance: TEDUGLUTIDE
     Dosage: 3.2 MILLIGRAM, QD
     Route: 058
  12. TEDUGLUTIDE [Suspect]
     Active Substance: TEDUGLUTIDE
     Dosage: 3.2 MILLIGRAM, QD
     Route: 058
  13. TEDUGLUTIDE [Suspect]
     Active Substance: TEDUGLUTIDE
     Dosage: 3 MILLIGRAM, QD
     Route: 058
  14. TEDUGLUTIDE [Suspect]
     Active Substance: TEDUGLUTIDE
     Dosage: 3 MILLIGRAM, QD
     Route: 058
  15. TEDUGLUTIDE [Suspect]
     Active Substance: TEDUGLUTIDE
     Dosage: 3 MILLIGRAM, QD
     Route: 058
  16. TEDUGLUTIDE [Suspect]
     Active Substance: TEDUGLUTIDE
     Dosage: 3 MILLIGRAM, QD
     Route: 058
  17. TEDUGLUTIDE [Suspect]
     Active Substance: TEDUGLUTIDE
     Dosage: 3 MILLIGRAM, QD
     Route: 065
     Dates: end: 20200914
  18. TEDUGLUTIDE [Suspect]
     Active Substance: TEDUGLUTIDE
     Dosage: 3 MILLIGRAM, QD
     Route: 065
     Dates: end: 20200914
  19. TEDUGLUTIDE [Suspect]
     Active Substance: TEDUGLUTIDE
     Dosage: 3 MILLIGRAM, QD
     Route: 065
     Dates: end: 20200914
  20. TEDUGLUTIDE [Suspect]
     Active Substance: TEDUGLUTIDE
     Dosage: 3 MILLIGRAM, QD
     Route: 065
     Dates: end: 20200914
  21. TEDUGLUTIDE [Suspect]
     Active Substance: TEDUGLUTIDE
     Dosage: 3.2 MILLIGRAM, QD
     Route: 050
  22. TEDUGLUTIDE [Suspect]
     Active Substance: TEDUGLUTIDE
     Dosage: 3.2 MILLIGRAM, QD
     Route: 050
  23. TEDUGLUTIDE [Suspect]
     Active Substance: TEDUGLUTIDE
     Dosage: 3.2 MILLIGRAM, QD
     Route: 050
  24. TEDUGLUTIDE [Suspect]
     Active Substance: TEDUGLUTIDE
     Dosage: 3.2 MILLIGRAM, QD
     Route: 050
  25. TEDUGLUTIDE [Suspect]
     Active Substance: TEDUGLUTIDE
     Dosage: 3.2 MILLIGRAM, QD
     Route: 065
  26. TEDUGLUTIDE [Suspect]
     Active Substance: TEDUGLUTIDE
     Dosage: 3.2 MILLIGRAM, QD
     Route: 065
  27. TEDUGLUTIDE [Suspect]
     Active Substance: TEDUGLUTIDE
     Dosage: 3.2 MILLIGRAM, QD
     Route: 065
  28. TEDUGLUTIDE [Suspect]
     Active Substance: TEDUGLUTIDE
     Dosage: 3.2 MILLIGRAM, QD
     Route: 065
  29. TEDUGLUTIDE [Suspect]
     Active Substance: TEDUGLUTIDE
     Dosage: 3.8 MILLIGRAM, QD
     Route: 058
  30. TEDUGLUTIDE [Suspect]
     Active Substance: TEDUGLUTIDE
     Dosage: 3.8 MILLIGRAM, QD
     Route: 058
  31. TEDUGLUTIDE [Suspect]
     Active Substance: TEDUGLUTIDE
     Dosage: 3.8 MILLIGRAM, QD
     Route: 058
  32. TEDUGLUTIDE [Suspect]
     Active Substance: TEDUGLUTIDE
     Dosage: 3.8 MILLIGRAM, QD
     Route: 058
  33. TEDUGLUTIDE [Suspect]
     Active Substance: TEDUGLUTIDE
     Dosage: 3.6 MILLIGRAM, QD
     Route: 050
  34. TEDUGLUTIDE [Suspect]
     Active Substance: TEDUGLUTIDE
     Dosage: 3.6 MILLIGRAM, QD
     Route: 050
  35. TEDUGLUTIDE [Suspect]
     Active Substance: TEDUGLUTIDE
     Dosage: 3.6 MILLIGRAM, QD
     Route: 050
  36. TEDUGLUTIDE [Suspect]
     Active Substance: TEDUGLUTIDE
     Dosage: 3.6 MILLIGRAM, QD
     Route: 050
  37. IMODIUM [Concomitant]
     Active Substance: LOPERAMIDE HYDROCHLORIDE
     Indication: Product used for unknown indication
     Dosage: 2 DOSAGE FORM, QID
     Route: 065
  38. LOMOTIL [Concomitant]
     Active Substance: ATROPINE SULFATE\DIPHENOXYLATE HYDROCHLORIDE
     Indication: Product used for unknown indication
     Dosage: 2 DOSAGE FORM, QID
     Route: 065
  39. EFFEXOR [Concomitant]
     Active Substance: VENLAFAXINE HYDROCHLORIDE
     Indication: Product used for unknown indication
     Dosage: UNK
     Route: 065
  40. SYNTHROID [Concomitant]
     Active Substance: LEVOTHYROXINE SODIUM
     Indication: Product used for unknown indication
     Dosage: UNK
     Route: 065
  41. SALT [Concomitant]
     Active Substance: SODIUM CHLORIDE
     Indication: Product used for unknown indication
     Dosage: 6 DOSAGE FORM, Q4HR
     Route: 065
  42. SALT [Concomitant]
     Active Substance: SODIUM CHLORIDE
     Dosage: 6 DOSAGE FORM, QD
     Route: 065
  43. URSODIOL [Concomitant]
     Active Substance: URSODIOL
     Indication: Product used for unknown indication
     Dosage: 2 DOSAGE FORM, BID
     Route: 065
  44. TPN [Concomitant]
     Active Substance: AMINO ACIDS\DEXTROSE\ELECTROLYTES NOS\SOYBEAN OIL
     Indication: Product used for unknown indication
     Dosage: UNK, Q12H
     Route: 065
     Dates: start: 201712
  45. TPN [Concomitant]
     Active Substance: AMINO ACIDS\DEXTROSE\ELECTROLYTES NOS\SOYBEAN OIL
     Dosage: 2290 MILLILITER
     Route: 065
     Dates: start: 20201004
  46. TPN [Concomitant]
     Active Substance: AMINO ACIDS\DEXTROSE\ELECTROLYTES NOS\SOYBEAN OIL
     Dosage: 1770 MILLILITER
     Route: 065
  47. TPN [Concomitant]
     Active Substance: AMINO ACIDS\DEXTROSE\ELECTROLYTES NOS\SOYBEAN OIL
     Dosage: 2740 MILLILITER
     Route: 065

REACTIONS (21)
  - Urinary tract infection [Not Recovered/Not Resolved]
  - Abdominal abscess [Recovering/Resolving]
  - Ulcer [Unknown]
  - Peripheral swelling [Unknown]
  - Anal fistula [Not Recovered/Not Resolved]
  - Fistula [Recovering/Resolving]
  - Fistula discharge [Unknown]
  - Abscess limb [Not Recovered/Not Resolved]
  - Pain [Unknown]
  - Oedema peripheral [Unknown]
  - Abdominal pain [Unknown]
  - Fear of surgery [Unknown]
  - Aortic aneurysm [Unknown]
  - Weight increased [Unknown]
  - Herpes zoster [Recovering/Resolving]
  - COVID-19 [Recovering/Resolving]
  - Post procedural erythema [Not Recovered/Not Resolved]
  - Weight decreased [Unknown]
  - Fluid retention [Unknown]
  - Product dose omission issue [Recovered/Resolved]
  - Inappropriate schedule of product administration [Unknown]

NARRATIVE: CASE EVENT DATE: 20190606
